FAERS Safety Report 13135918 (Version 5)
Quarter: 2017Q3

REPORT INFORMATION
  Report Type: Spontaneous
  Country: KR (occurrence: KR)
  Receive Date: 20170120
  Receipt Date: 20170802
  Transmission Date: 20171127
  Serious: Yes (Hospitalization, Other)
  Sender: FDA-Public Use
  Company Number: KR-009507513-1701KOR009377

PATIENT
  Age: 75 Year
  Sex: Male
  Weight: 52.4 kg

DRUGS (21)
  1. DEXAMETHASONE. [Concomitant]
     Active Substance: DEXAMETHASONE
     Indication: PROPHYLAXIS
     Dosage: 4 MG, QD
     Route: 048
     Dates: start: 20160530, end: 20160531
  2. AZEPTIN [Concomitant]
     Active Substance: AZELASTINE HYDROCHLORIDE
     Indication: PROPHYLAXIS
     Dosage: 1 MG (1 TABLET), BID
     Route: 048
     Dates: start: 20160311
  3. NOVOMIX 30 [Concomitant]
     Active Substance: INSULIN ASPART
     Indication: DIABETES MELLITUS
     Dosage: STRENGTH: 100 IU/ML; 10 UNIT, QD
     Route: 058
     Dates: start: 20160328
  4. CISPLATIN. [Concomitant]
     Active Substance: CISPLATIN
     Indication: LUNG NEOPLASM MALIGNANT
     Dosage: STRENGTH: 50MG/ 100 ML; 75 MG, ONCE; CYCLE 5
     Route: 042
     Dates: start: 20160528, end: 20160528
  5. MEGACE F [Concomitant]
     Indication: PROPHYLAXIS
     Dosage: 1 PK, QD
     Route: 048
     Dates: start: 20160407
  6. JANUVIA [Concomitant]
     Active Substance: SITAGLIPTIN PHOSPHATE
     Indication: DIABETES MELLITUS
     Dosage: 100 MG (1 TABLET), QD
     Route: 048
     Dates: start: 20160414
  7. EMEND (FOSAPREPITANT DIMEGLUMINE) [Suspect]
     Active Substance: FOSAPREPITANT DIMEGLUMINE
     Dosage: 150 MG, ONCE
     Route: 042
     Dates: start: 20160412, end: 20160412
  8. LANTUS [Concomitant]
     Active Substance: INSULIN GLARGINE
     Indication: DIABETES MELLITUS
     Dosage: STRENGTH: 100 IU/ML; PRN
     Route: 058
     Dates: start: 20160320
  9. MANNITOL. [Concomitant]
     Active Substance: MANNITOL
     Indication: PREMEDICATION
     Dosage: STRENGTH: 20 % 100 ML (BAG); 70 ML, ONCE
     Route: 042
     Dates: start: 20160528, end: 20160528
  10. DIABEX [Concomitant]
     Active Substance: METFORMIN HYDROCHLORIDE
     Indication: DIABETES MELLITUS
     Dosage: 500 MG (1 TABLET), TID
     Route: 048
     Dates: start: 20160328
  11. LIVALO [Concomitant]
     Active Substance: PITAVASTATIN CALCIUM
     Indication: PROPHYLAXIS
     Dosage: 2 MG (1 TABLET), QD
     Route: 048
     Dates: start: 20160404
  12. GEMCITABINE HYDROCHLORIDE. [Concomitant]
     Active Substance: GEMCITABINE HYDROCHLORIDE
     Indication: LUNG NEOPLASM MALIGNANT
     Dosage: 2 G, ONCE; CYCLE 5
     Route: 042
     Dates: start: 20160528, end: 20160528
  13. MACPERAN [Concomitant]
     Active Substance: METOCLOPRAMIDE HYDROCHLORIDE
     Indication: PROPHYLAXIS
     Dosage: 2 TABLETS, BID
     Route: 048
     Dates: start: 20160529, end: 20160531
  14. CODAEWON FORTE SYR (AMMONIUM CHLORIDE\CHLORPHENIRAMINE MALEATE\DIHYDROCODEINE BITARTRATE\METHYLEPHEDRINE HYDROCHLORIDE, (+/-)-) [Suspect]
     Active Substance: AMMONIUM CHLORIDE\CHLORPHENIRAMINE MALEATE\DIHYDROCODEINE BITARTRATE\METHYLEPHEDRINE HYDROCHLORIDE, (+/-)-
  15. EMEND (FOSAPREPITANT DIMEGLUMINE) [Suspect]
     Active Substance: FOSAPREPITANT DIMEGLUMINE
     Dosage: 150 MG, ONCE
     Route: 042
     Dates: start: 20160503, end: 20160503
  16. DEXAMETHASONE SODIUM PHOSPHATE. [Concomitant]
     Active Substance: DEXAMETHASONE SODIUM PHOSPHATE
     Dosage: STRENGHT: 5 MG/ML; 4 MG, QD
     Route: 042
     Dates: start: 20160529, end: 20160530
  17. ALOXI [Concomitant]
     Active Substance: PALONOSETRON HYDROCHLORIDE
     Indication: PREMEDICATION
     Dosage: 0.25 MG, ONCE
     Route: 042
     Dates: start: 20160528, end: 20160528
  18. EMEND (FOSAPREPITANT DIMEGLUMINE) [Suspect]
     Active Substance: FOSAPREPITANT DIMEGLUMINE
     Indication: PROPHYLAXIS OF NAUSEA AND VOMITING
     Dosage: 150 MG, ONCE
     Route: 042
     Dates: start: 20160319, end: 20160319
  19. EMEND (FOSAPREPITANT DIMEGLUMINE) [Suspect]
     Active Substance: FOSAPREPITANT DIMEGLUMINE
     Dosage: 150 MG, ONCE
     Route: 042
     Dates: start: 20160528, end: 20160528
  20. DEXAMETHASONE SODIUM PHOSPHATE. [Concomitant]
     Active Substance: DEXAMETHASONE SODIUM PHOSPHATE
     Indication: PREMEDICATION
     Dosage: STRENGHT: 5 MG/ML; 8 MG, ONCE
     Route: 042
     Dates: start: 20160528, end: 20160528
  21. HEPARIN SODIUM. [Concomitant]
     Active Substance: HEPARIN SODIUM
     Indication: PROPHYLAXIS
     Dosage: 1 ML, ONCE
     Route: 042
     Dates: start: 20160527, end: 20160527

REACTIONS (3)
  - Pneumonia [Recovered/Resolved]
  - Disorientation [Recovered/Resolved]
  - Delirium [Recovered/Resolved]

NARRATIVE: CASE EVENT DATE: 20160607
